FAERS Safety Report 6720136-X (Version None)
Quarter: 2010Q2

REPORT INFORMATION
  Report Type: 
  Country: None (occurrence: None)
  Receive Date: 20100507
  Receipt Date: 20020102
  Transmission Date: 20101027
  Serious: Yes (Other)
  Sender: FDA-Public Use
  Company Number: WAES 0201GBR00009

PATIENT
  Age: 71 Year
  Sex: Male

DRUGS (2)
  1. FINASTERIDE [Suspect]
     Indication: PROSTATIC DISORDER
     Dosage: 5 MG/DAILY
     Route: 048
     Dates: start: 19990801
  2. FLUOXETINE [Suspect]
     Indication: DEPRESSION
     Dosage: 20 MG/DAILY
     Dates: start: 19960101

REACTIONS (2)
  - BREAST CANCER MALE [None]
  - OESTROGEN RECEPTOR ASSAY POSITIVE [None]
